FAERS Safety Report 7759811-7 (Version None)
Quarter: 2011Q3

REPORT INFORMATION
  Report Type: 
  Country: None (occurrence: None)
  Receive Date: 20110915
  Receipt Date: 20110908
  Transmission Date: 20111222
  Serious: Yes (Other)
  Sender: FDA-Public Use
  Company Number: B0746221A

PATIENT
  Age: 74 Year
  Sex: Male

DRUGS (1)
  1. CEFUROXIME SODIUM [Suspect]
     Indication: CATARACT OPERATION
     Dosage: SINGLE DOSE/OCULAR
     Route: 031

REACTIONS (7)
  - RETINAL OEDEMA [None]
  - INTRAOCULAR PRESSURE INCREASED [None]
  - RETINAL DETACHMENT [None]
  - RETINAL DISORDER [None]
  - ACCIDENTAL OVERDOSE [None]
  - WRONG TECHNIQUE IN DRUG USAGE PROCESS [None]
  - EYE INFLAMMATION [None]
